FAERS Safety Report 6151493-3 (Version None)
Quarter: 2009Q2

REPORT INFORMATION
  Report Type: 
  Country: None (occurrence: None)
  Receive Date: 20090410
  Receipt Date: 20090330
  Transmission Date: 20091009
  Serious: Yes (Hospitalization)
  Sender: FDA-Public Use
  Company Number: JP-JNJFOC-20090401386

PATIENT
  Sex: Female
  Weight: 64 kg

DRUGS (21)
  1. REMICADE [Suspect]
     Dosage: TOTAL OF 4 DOSES
     Route: 042
  2. REMICADE [Suspect]
     Route: 042
  3. REMICADE [Suspect]
     Route: 042
  4. REMICADE [Suspect]
     Indication: RHEUMATOID ARTHRITIS
     Route: 042
  5. RHEUMATREX [Suspect]
     Route: 048
  6. RHEUMATREX [Suspect]
     Indication: RHEUMATOID ARTHRITIS
     Route: 048
  7. TAKEPRON [Suspect]
     Indication: RHEUMATOID ARTHRITIS
     Route: 048
  8. VOLTAREN [Suspect]
     Indication: RHEUMATOID ARTHRITIS
     Route: 048
  9. PREDNISOLONE [Suspect]
     Route: 048
  10. PREDNISOLONE [Suspect]
     Route: 048
  11. PREDNISOLONE [Suspect]
     Indication: RHEUMATOID ARTHRITIS
     Route: 048
  12. ROCALTROL [Suspect]
     Indication: RHEUMATOID ARTHRITIS
     Dosage: DOSE: ^0.25 RG^
     Route: 048
  13. VOLTAREN [Concomitant]
     Indication: PAIN IN EXTREMITY
     Dosage: 3 TO 5 TIMES/DAY
     Route: 054
  14. LORCAM [Concomitant]
     Route: 048
  15. AZULFIDINE [Concomitant]
     Route: 048
  16. SALAZOSULFAPYRIDINE [Concomitant]
     Route: 065
  17. AMARYL [Concomitant]
     Route: 048
  18. AMLODIN [Concomitant]
     Route: 048
  19. GLUCOBAY [Concomitant]
     Route: 048
  20. BONALON [Concomitant]
     Route: 048
  21. DEPO-MEDROL [Concomitant]
     Indication: RHEUMATOID ARTHRITIS
     Dosage: ROUTE: ^IR^

REACTIONS (2)
  - OVARIAN MASS [None]
  - RHEUMATOID ARTHRITIS [None]
